FAERS Safety Report 13974665 (Version 4)
Quarter: 2018Q2

REPORT INFORMATION
  Report Type: Report from Study
  Country: HU (occurrence: HU)
  Receive Date: 20170915
  Receipt Date: 20180426
  Transmission Date: 20180711
  Serious: Yes (Hospitalization, Other)
  Sender: FDA-Public Use
  Company Number: HU-ASTRAZENECA-2017SE91673

PATIENT
  Age: 67 Year
  Sex: Female

DRUGS (23)
  1. ETOPOSIDE. [Suspect]
     Active Substance: ETOPOSIDE
     Indication: SMALL CELL LUNG CANCER
     Dosage: 140 MG/M2 ONCE/SINGLE ADMINISTRATION
     Route: 065
     Dates: start: 20170714, end: 20170714
  2. ETOPOSIDE. [Suspect]
     Active Substance: ETOPOSIDE
     Indication: SMALL CELL LUNG CANCER
     Dosage: 130 MG/M2 ONCE/SINGLE ADMINISTRATION
     Route: 065
     Dates: start: 20170912, end: 20170912
  3. ETOPOSIDE. [Suspect]
     Active Substance: ETOPOSIDE
     Indication: SMALL CELL LUNG CANCER
     Dosage: 140 MG/M2 ONCE/SINGLE ADMINISTRATION
     Route: 065
     Dates: start: 20170712, end: 20170712
  4. PANTOPRAZOLE [Concomitant]
     Active Substance: PANTOPRAZOLE
     Indication: ACIDOSIS
     Route: 048
     Dates: start: 20170626, end: 20170921
  5. FUROSEMIDE. [Concomitant]
     Active Substance: FUROSEMIDE
     Indication: DIURETIC THERAPY
     Route: 048
     Dates: start: 20170730, end: 20170829
  6. MILURIT [Concomitant]
     Active Substance: ALLOPURINOL
     Indication: ALLERGY PROPHYLAXIS
     Dosage: 100 MG TWO TIMES A DAY
     Route: 048
     Dates: start: 20170714, end: 20170921
  7. MEDI4736 [Suspect]
     Active Substance: DURVALUMAB
     Indication: SMALL CELL LUNG CANCER
     Route: 042
     Dates: start: 20170712, end: 20170712
  8. CARBOPLATIN. [Suspect]
     Active Substance: CARBOPLATIN
     Indication: SMALL CELL LUNG CANCER
     Dosage: 370 AUC
     Route: 065
     Dates: start: 20170912, end: 20170912
  9. FUROSEMIDE. [Concomitant]
     Active Substance: FUROSEMIDE
     Indication: DIURETIC THERAPY
     Route: 048
     Dates: end: 20171026
  10. CARBOPLATIN. [Suspect]
     Active Substance: CARBOPLATIN
     Indication: SMALL CELL LUNG CANCER
     Dosage: 493 AUC
     Route: 065
     Dates: start: 20170712, end: 20170712
  11. ETOPOSIDE. [Suspect]
     Active Substance: ETOPOSIDE
     Indication: SMALL CELL LUNG CANCER
     Dosage: 140 MG/M2 ONCE/SINGLE ADMINISTRATION
     Route: 065
     Dates: start: 20170713, end: 20170713
  12. CLEXANE [Concomitant]
     Active Substance: ENOXAPARIN SODIUM
     Indication: SUPPORTIVE CARE
     Dosage: 400.4 ML EVERY OTHER DAY
     Route: 058
     Dates: start: 20170714, end: 20171026
  13. CONTRAMAL [Concomitant]
     Active Substance: TRAMADOL HYDROCHLORIDE
     Indication: PAIN PROPHYLAXIS
     Dosage: 250 MG EVERY OTHER DAY
     Route: 048
     Dates: start: 201707, end: 20170921
  14. SOLU-MEDROL [Concomitant]
     Active Substance: METHYLPREDNISOLONE SODIUM SUCCINATE
     Indication: DYSPNOEA
     Dosage: 40 MG EVERY OTHER DAY
     Route: 042
     Dates: start: 20170730, end: 201708
  15. ETOPOSIDE. [Suspect]
     Active Substance: ETOPOSIDE
     Indication: SMALL CELL LUNG CANCER
     Dosage: 130 MG/M2 ONCE/SINGLE ADMINISTRATION
     Route: 065
     Dates: start: 20170914, end: 20170914
  16. RETAPHYLIN [Concomitant]
     Indication: DYSPNOEA
     Dosage: 300 MG THREE TIMES A DAY
     Route: 048
  17. LACTATED RINGERS SOLUTION [Concomitant]
     Active Substance: CALCIUM CHLORIDE\POTASSIUM CHLORIDE\SODIUM CHLORIDE\SODIUM LACTATE
     Indication: PROPHYLAXIS
     Dosage: 500 ML UNKNOWN
     Route: 042
     Dates: start: 20170730, end: 20170829
  18. NACL [Concomitant]
     Active Substance: SODIUM CHLORIDE
     Indication: HYPONATRAEMIA
     Dosage: 30 ML UNKNOWN
     Route: 042
     Dates: start: 20170730, end: 20170829
  19. FRONTIN [Concomitant]
     Active Substance: ALPRAZOLAM
     Indication: PROPHYLAXIS
     Dosage: 0.25 MG THREE TIMES A DAY
     Route: 048
     Dates: start: 20170730, end: 20171026
  20. MEGESTROL [Concomitant]
     Active Substance: MEGESTROL
     Indication: DYSPEPSIA
     Route: 048
     Dates: start: 20170730, end: 20170921
  21. ETOPOSIDE. [Suspect]
     Active Substance: ETOPOSIDE
     Indication: SMALL CELL LUNG CANCER
     Dosage: 130 MG/M2 ONCE/SINGLE ADMINISTRATION
     Route: 065
     Dates: start: 20170913, end: 20170913
  22. KALIUM RETARD [Concomitant]
     Indication: DYSPNOEA
     Route: 048
     Dates: end: 20171026
  23. CONTROLOC [Concomitant]
     Active Substance: PANTOPRAZOLE SODIUM
     Indication: PAIN PROPHYLAXIS
     Dosage: 40 MG UNKNOWN
     Route: 042
     Dates: start: 20170730, end: 20170829

REACTIONS (2)
  - Acute kidney injury [Recovered/Resolved]
  - Neurotoxicity [Recovered/Resolved]

NARRATIVE: CASE EVENT DATE: 20170730
